FAERS Safety Report 20910179 (Version 11)
Quarter: 2022Q3

REPORT INFORMATION
  Report Type: Spontaneous
  Country: US (occurrence: US)
  Receive Date: 20220603
  Receipt Date: 20220930
  Transmission Date: 20221027
  Serious: Yes (Hospitalization, Other)
  Sender: FDA-Public Use
  Company Number: US-UNITED THERAPEUTICS-UNT-2022-011836

PATIENT
  Sex: Male

DRUGS (7)
  1. TYVASO [Suspect]
     Active Substance: TREPROSTINIL
     Indication: Pulmonary hypertension
     Dosage: UNK
     Dates: start: 20220520
  2. TYVASO [Suspect]
     Active Substance: TREPROSTINIL
     Indication: Lung disorder
     Dosage: 24 ?G, QID
     Dates: start: 2022, end: 2022
  3. TYVASO [Suspect]
     Active Substance: TREPROSTINIL
     Indication: Hypoxia
     Dosage: 18 ?G, QID
     Dates: start: 2022
  4. TYVASO [Suspect]
     Active Substance: TREPROSTINIL
     Dosage: 42 ?G, QID
     Dates: start: 2022
  5. MAGNESIUM CITRATE [Suspect]
     Active Substance: MAGNESIUM CITRATE
     Indication: Constipation
     Dosage: UNK
     Route: 065
  6. METOPROLOL [Suspect]
     Active Substance: METOPROLOL
     Indication: Product used for unknown indication
     Dosage: UNK
     Route: 065
     Dates: end: 202207
  7. METOPROLOL [Suspect]
     Active Substance: METOPROLOL
     Dosage: UNK (RESTARTED)
     Route: 065
     Dates: start: 202207

REACTIONS (20)
  - Pneumonia [Unknown]
  - Dizziness postural [Unknown]
  - Atrial fibrillation [Unknown]
  - Hypoxia [Unknown]
  - Lung disorder [Unknown]
  - Nausea [Unknown]
  - Vomiting [Unknown]
  - Constipation [Unknown]
  - Cough [Unknown]
  - Dizziness exertional [Recovered/Resolved]
  - Fatigue [Unknown]
  - Asthenia [Unknown]
  - Dizziness [Recovering/Resolving]
  - Throat irritation [Unknown]
  - Hypotension [Unknown]
  - Heart rate irregular [Unknown]
  - Oedema [Unknown]
  - Decreased appetite [Unknown]
  - Hyperphagia [Unknown]
  - Off label use [Unknown]

NARRATIVE: CASE EVENT DATE: 20220101
